FAERS Safety Report 17468360 (Version 1)
Quarter: 2020Q1

REPORT INFORMATION
  Report Type: Report from Study
  Country: US (occurrence: US)
  Receive Date: 20200227
  Receipt Date: 20200227
  Transmission Date: 20200409
  Serious: Yes (Hospitalization, Other)
  Sender: FDA-Public Use
  Company Number: NVSC2017US000490

PATIENT
  Age: 30 Year
  Sex: Female
  Weight: 59.4 kg

DRUGS (30)
  1. AZITHROMYCIN ANHYDROUS. [Concomitant]
     Active Substance: AZITHROMYCIN ANHYDROUS
     Indication: CYSTIC FIBROSIS LUNG
     Dosage: 1 DOSAGE FORM, QD
     Route: 048
     Dates: start: 20131217
  2. COLACE [Concomitant]
     Active Substance: DOCUSATE SODIUM
     Indication: PANCREATIC FAILURE
     Dosage: 1 DOSAGE FORM, BID
     Route: 048
     Dates: start: 20170118
  3. CREON [Concomitant]
     Active Substance: PANCRELIPASE AMYLASE\PANCRELIPASE LIPASE\PANCRELIPASE PROTEASE
     Indication: PANCREATIC FAILURE
     Dosage: 4-5 CAPSULE, TID
     Route: 048
     Dates: start: 20110901
  4. CREON [Concomitant]
     Active Substance: PANCRELIPASE AMYLASE\PANCRELIPASE LIPASE\PANCRELIPASE PROTEASE
     Indication: CYSTIC FIBROSIS
     Dosage: 2 DOSAGE FORM, BID
     Route: 048
     Dates: start: 20110901
  5. OCEAN SALINE NASAL SPRAY [Concomitant]
     Active Substance: SODIUM CHLORIDE
     Indication: CYSTIC FIBROSIS
  6. PULMOZYME [Concomitant]
     Active Substance: DORNASE ALFA
     Indication: CYSTIC FIBROSIS LUNG
     Dosage: 2.5 MILLIGRAM, BID
     Route: 065
     Dates: start: 20110823
  7. OYSTERCAL [Concomitant]
     Indication: PANCREATIC FAILURE
     Dosage: 1250 MILLIGRAM, BID
     Route: 048
     Dates: start: 20131217
  8. OYSTERCAL [Concomitant]
     Indication: CYSTIC FIBROSIS
  9. DEKA [Concomitant]
     Indication: PANCREATIC FAILURE
     Dosage: 1 DF, QID
     Route: 048
     Dates: start: 20110901
  10. VITAMIN A [Concomitant]
     Active Substance: VITAMIN A
     Indication: CYSTIC FIBROSIS
  11. COLACE [Concomitant]
     Active Substance: DOCUSATE SODIUM
     Indication: CYSTIC FIBROSIS
  12. DEKA [Concomitant]
     Indication: CYSTIC FIBROSIS
  13. POLYETHYLENE GLYCOL [Concomitant]
     Active Substance: POLYETHYLENE GLYCOLS
     Indication: PANCREATIC FAILURE
     Dosage: 174 OT, QD
     Route: 048
     Dates: start: 20120208
  14. CAYSTON [Concomitant]
     Active Substance: AZTREONAM
     Indication: CYSTIC FIBROSIS LUNG
     Dosage: 75 MILLIGRAM, TID
     Route: 065
     Dates: start: 20140923
  15. OCEAN SALINE NASAL SPRAY [Concomitant]
     Active Substance: SODIUM CHLORIDE
     Indication: SINUS DISORDER
     Dosage: 25 SPRAY, Q2H
     Route: 045
     Dates: start: 20150218
  16. PROAIR HFA [Concomitant]
     Active Substance: ALBUTEROL SULFATE
     Indication: CYSTIC FIBROSIS LUNG
     Dosage: 2 PUFFS, TID
     Route: 065
     Dates: start: 20140513
  17. PANTOPRAZOLE [Concomitant]
     Active Substance: PANTOPRAZOLE
     Indication: CYSTIC FIBROSIS LUNG
     Dosage: 40 MG, BID
     Route: 048
     Dates: start: 20120515
  18. VITAMIN B1 [Concomitant]
     Active Substance: THIAMINE HYDROCHLORIDE
     Indication: CYSTIC FIBROSIS
  19. ALBUTEROL. [Concomitant]
     Active Substance: ALBUTEROL
     Indication: CYSTIC FIBROSIS LUNG
     Dosage: 1 VIAL, BID
     Route: 065
     Dates: start: 20160301
  20. FLUTICASONE. [Concomitant]
     Active Substance: FLUTICASONE
     Indication: SINUS DISORDER
     Dosage: 50 MICROGRAM, QD
     Route: 065
     Dates: start: 20151027
  21. MAGNESIUM [Concomitant]
     Active Substance: MAGNESIUM
     Indication: PANCREATIC FAILURE
     Dosage: 400 MG, BID
     Route: 048
     Dates: start: 20140923
  22. VITAMIN A [Concomitant]
     Active Substance: VITAMIN A
     Indication: PANCREATIC FAILURE
     Dosage: 1 DOSAGE FORM, TID
     Route: 065
     Dates: start: 20130122
  23. PULMOSAL [Concomitant]
     Active Substance: SODIUM CHLORIDE
     Indication: CYSTIC FIBROSIS LUNG
     Dosage: 1 VIAL, TID
     Route: 065
     Dates: start: 20110901
  24. TOBRAMYCIN. [Suspect]
     Active Substance: TOBRAMYCIN
     Indication: PRODUCT USED FOR UNKNOWN INDICATION
     Route: 065
  25. FLUTICASONE. [Concomitant]
     Active Substance: FLUTICASONE
     Indication: CYSTIC FIBROSIS
  26. MAGNESIUM [Concomitant]
     Active Substance: MAGNESIUM
     Indication: CYSTIC FIBROSIS
  27. POLYETHYLENE GLYCOL [Concomitant]
     Active Substance: POLYETHYLENE GLYCOLS
     Indication: CYSTIC FIBROSIS
  28. ADVAIR HFA [Concomitant]
     Active Substance: FLUTICASONE PROPIONATE\SALMETEROL XINAFOATE
     Indication: CYSTIC FIBROSIS LUNG
     Dosage: 1 PUFF, BID
     Route: 065
     Dates: start: 20170118, end: 20170418
  29. VITAMIN B1 [Concomitant]
     Active Substance: THIAMINE HYDROCHLORIDE
     Indication: PANCREATIC FAILURE
     Dosage: 100 MG, QD
     Route: 048
     Dates: start: 20140923
  30. ZOLPIDEM [Concomitant]
     Active Substance: ZOLPIDEM TARTRATE
     Indication: SLEEP DISORDER
     Dosage: 5 MG, PRN
     Route: 048
     Dates: start: 20130527

REACTIONS (1)
  - Infective pulmonary exacerbation of cystic fibrosis [Recovered/Resolved]

NARRATIVE: CASE EVENT DATE: 20170419
